FAERS Safety Report 5108196-3 (Version None)
Quarter: 2006Q3

REPORT INFORMATION
  Report Type: 
  Country: None (occurrence: None)
  Receive Date: 20060919
  Receipt Date: 20060913
  Transmission Date: 20061208
  Serious: Yes (Congenital Anomaly)
  Sender: FDA-Public Use
  Company Number: DE-ROCHE-463059

PATIENT
  Sex: Female
  Weight: 1.9 kg

DRUGS (1)
  1. NAPROXEN SODIUM [Suspect]
     Indication: MYALGIA

REACTIONS (15)
  - ANURIA [None]
  - BLOOD PRESSURE DECREASED [None]
  - CAESAREAN SECTION [None]
  - CANDIDIASIS [None]
  - DISSEMINATED INTRAVASCULAR COAGULATION [None]
  - DRUG EXPOSURE DURING PREGNANCY [None]
  - ELECTROLYTE IMBALANCE [None]
  - GENERALISED OEDEMA [None]
  - ILEITIS [None]
  - INTESTINAL ISCHAEMIA [None]
  - INTESTINAL PERFORATION [None]
  - OLIGOHYDRAMNIOS [None]
  - PERITONEAL DIALYSIS [None]
  - RENAL APLASIA [None]
  - SEPSIS [None]
